FAERS Safety Report 19204106 (Version 1)
Quarter: 2021Q2

REPORT INFORMATION
  Report Type: Report from Study
  Country: US (occurrence: US)
  Receive Date: 20210503
  Receipt Date: 20210503
  Transmission Date: 20210717
  Serious: No
  Sender: FDA-Public Use
  Company Number: US-ACADIA PHARMACEUTICALS INC.-ACA-2021-PIM-001349

PATIENT
  Age: 79 Year
  Sex: Female

DRUGS (11)
  1. IPRATROPIUM [Concomitant]
     Active Substance: IPRATROPIUM
  2. FLUDROCORTISON [Concomitant]
     Active Substance: FLUDROCORTISONE
  3. MELATONIN [Concomitant]
     Active Substance: MELATONIN
  4. MYRBETRIQ [Concomitant]
     Active Substance: MIRABEGRON
  5. RIVASTIGMINE. [Concomitant]
     Active Substance: RIVASTIGMINE
  6. SEROQUEL [Concomitant]
     Active Substance: QUETIAPINE FUMARATE
  7. SINEMET [Concomitant]
     Active Substance: CARBIDOPA\LEVODOPA
  8. ALENDRONATE [Concomitant]
     Active Substance: ALENDRONATE SODIUM
  9. CENTRUM BALANCE [Concomitant]
  10. MEMANTINE. [Concomitant]
     Active Substance: MEMANTINE
  11. NUPLAZID [Suspect]
     Active Substance: PIMAVANSERIN TARTRATE
     Indication: PARKINSON^S DISEASE
     Dosage: UNK
     Route: 065

REACTIONS (2)
  - Lacrimation increased [Not Recovered/Not Resolved]
  - Rhinorrhoea [Not Recovered/Not Resolved]

NARRATIVE: CASE EVENT DATE: 20210325
